FAERS Safety Report 25821552 (Version 1)
Quarter: 2025Q3

REPORT INFORMATION
  Report Type: Spontaneous
  Country: ID (occurrence: ID)
  Receive Date: 20250919
  Receipt Date: 20250919
  Transmission Date: 20251020
  Serious: Yes (Death, Hospitalization, Other)
  Sender: Steriscience PTE
  Company Number: ID-STERISCIENCE B.V.-2025-ST-001513

PATIENT
  Age: 37 Year
  Sex: Male

DRUGS (4)
  1. MEROPENEM [Suspect]
     Active Substance: MEROPENEM
     Indication: Abiotrophia defectiva endocarditis
     Route: 065
  2. CEFTRIAXONE [Suspect]
     Active Substance: CEFTRIAXONE
     Indication: Abiotrophia defectiva endocarditis
     Route: 065
  3. GENTAMICIN [Concomitant]
     Active Substance: GENTAMICIN
     Indication: Evidence based treatment
     Route: 065
  4. AMPICILLIN SODIUM\SULBACTAM SODIUM [Concomitant]
     Active Substance: AMPICILLIN SODIUM\SULBACTAM SODIUM
     Indication: Evidence based treatment
     Route: 065

REACTIONS (3)
  - Acute respiratory distress syndrome [Fatal]
  - Septic shock [Fatal]
  - Drug ineffective [Fatal]
